FAERS Safety Report 8851735 (Version 1)
Quarter: 2012Q4

REPORT INFORMATION
  Report Type: Spontaneous
  Country: US (occurrence: None)
  Receive Date: 20121018
  Receipt Date: 20121018
  Transmission Date: 20130627
  Serious: Yes (Hospitalization, Disabling, Other)
  Sender: FDA-Public Use
  Company Number: None

PATIENT
  Age: 07 Month
  Sex: Female
  Weight: 54.43 kg

DRUGS (2)
  1. MIRENA [Suspect]
     Indication: BIRTH CONTROL
     Dosage: 1 5 YR ENDOCERVICAL
     Route: 005
     Dates: start: 20101210, end: 20110810
  2. MIRENA [Suspect]
     Indication: BIRTH CONTROL
     Dosage: 1 5 YR ENDOCERVICAL
     Route: 005
     Dates: start: 20111001, end: 20111101

REACTIONS (7)
  - Medical device pain [None]
  - Device related infection [None]
  - Pelvic inflammatory disease [None]
  - Product quality issue [None]
  - Device dislocation [None]
  - Staphylococcal infection [None]
  - Staphylococcal infection [None]
